FAERS Safety Report 10674523 (Version 1)
Quarter: 2014Q4

REPORT INFORMATION
  Report Type: Spontaneous
  Country: JP (occurrence: JP)
  Receive Date: 20141224
  Receipt Date: 20141224
  Transmission Date: 20150529
  Serious: Yes (Hospitalization)
  Sender: FDA-Public Use
  Company Number: JP-PFIZER INC-2014351158

PATIENT
  Age: 90 Year
  Sex: Male

DRUGS (1)
  1. ATARAX-P [Suspect]
     Active Substance: HYDROXYZINE HYDROCHLORIDE
     Dosage: UNK
     Route: 048

REACTIONS (2)
  - Cough [Unknown]
  - Pyrexia [Unknown]
